FAERS Safety Report 23146584 (Version 1)
Quarter: 2023Q4

REPORT INFORMATION
  Report Type: Spontaneous
  Country: FR (occurrence: FR)
  Receive Date: 20231105
  Receipt Date: 20231105
  Transmission Date: 20240110
  Serious: Yes (Death, Other)
  Sender: FDA-Public Use
  Company Number: FR-BRISTOL-MYERS SQUIBB COMPANY-BMS-2018-030759

PATIENT
  Age: 85 Year

DRUGS (2)
  1. ELIQUIS [Suspect]
     Active Substance: APIXABAN
     Indication: Cerebrovascular accident prophylaxis
     Dosage: 2.5 MG, PER DAY
     Route: 065
  2. HEPARIN [Suspect]
     Active Substance: HEPARIN SODIUM
     Indication: Prophylaxis
     Dosage: 4000 IU, DAILY
     Route: 058

REACTIONS (9)
  - Cerebrovascular accident [Fatal]
  - Haematoma [Unknown]
  - Fall [Unknown]
  - Prostatic disorder [Unknown]
  - Haematuria [Unknown]
  - Urinary retention [Unknown]
  - Prescribed underdose [Unknown]
  - Product use issue [Unknown]
  - Medication error [Unknown]

NARRATIVE: CASE EVENT DATE: 20170901
